FAERS Safety Report 6637065-2 (Version None)
Quarter: 2010Q1

REPORT INFORMATION
  Report Type: 
  Country: None (occurrence: None)
  Receive Date: 20100316
  Receipt Date: 20100308
  Transmission Date: 20100710
  Serious: Yes (Hospitalization)
  Sender: FDA-Public Use
  Company Number: BE-AMGEN-UK370488

PATIENT
  Sex: Male

DRUGS (4)
  1. PANITUMUMAB [Suspect]
     Indication: COLORECTAL CANCER
     Route: 042
     Dates: start: 20091013
  2. OXALIPLATIN [Concomitant]
     Route: 042
     Dates: start: 20091013
  3. FLUOROURACIL [Concomitant]
     Route: 042
     Dates: start: 20091013
  4. LEUCOVORIN CALCIUM [Concomitant]
     Route: 042
     Dates: start: 20091013

REACTIONS (6)
  - BURN OESOPHAGEAL [None]
  - DYSPNOEA [None]
  - GAMMA-GLUTAMYLTRANSFERASE INCREASED [None]
  - GLOSSITIS [None]
  - HIATUS HERNIA [None]
  - REFLUX OESOPHAGITIS [None]
